FAERS Safety Report 14989686 (Version 1)
Quarter: 2018Q2

REPORT INFORMATION
  Report Type: Spontaneous
  Country: DE (occurrence: DE)
  Receive Date: 20180608
  Receipt Date: 20180608
  Transmission Date: 20180711
  Serious: Yes (Hospitalization)
  Sender: FDA-Public Use
  Company Number: DE-TEVA-2018-DE-903217

PATIENT
  Age: 30 Year
  Sex: Female

DRUGS (1)
  1. AMOXICILLIN. [Suspect]
     Active Substance: AMOXICILLIN
     Dosage: NK MG, NK
     Route: 065

REACTIONS (4)
  - Orthostatic intolerance [Unknown]
  - Skin irritation [Unknown]
  - Rash [Unknown]
  - Dyspnoea [Unknown]
